FAERS Safety Report 16623683 (Version 1)
Quarter: 2019Q3

REPORT INFORMATION
  Report Type: Spontaneous
  Country: ES (occurrence: ES)
  Receive Date: 20190724
  Receipt Date: 20190724
  Transmission Date: 20191004
  Serious: Yes (Hospitalization)
  Sender: FDA-Public Use
  Company Number: ES-ORION CORPORATION ORION PHARMA-ENTC2019-0197

PATIENT
  Age: 74 Year
  Sex: Female

DRUGS (6)
  1. SINEMET [Suspect]
     Active Substance: CARBIDOPA\LEVODOPA
     Indication: PARKINSONISM
     Dosage: STRENGTH: LEVODOPA: 200 MG/CARBIDOPA: 50 MG
     Route: 048
     Dates: start: 201712
  2. SERTRALINE [Concomitant]
     Active Substance: SERTRALINE HYDROCHLORIDE
     Route: 065
     Dates: start: 201807
  3. STALEVO [Suspect]
     Active Substance: CARBIDOPA\ENTACAPONE\LEVODOPA
     Indication: PARKINSONISM
     Dosage: STRENGTH: LEVODOPA 150 MG/CARBIDOPA 37.5 MG/ENTACAPONE 200 MG
     Route: 048
     Dates: start: 201701, end: 20190218
  4. BISOPROLOL [Concomitant]
     Active Substance: BISOPROLOL
     Route: 065
  5. QUETIAPINA [Concomitant]
     Active Substance: QUETIAPINE
     Route: 065
     Dates: start: 201812
  6. EUTIROX [Concomitant]
     Active Substance: LEVOTHYROXINE SODIUM
     Route: 065

REACTIONS (1)
  - Psychotic disorder [Recovered/Resolved]

NARRATIVE: CASE EVENT DATE: 20190212
